FAERS Safety Report 21609049 (Version 6)
Quarter: 2023Q1

REPORT INFORMATION
  Report Type: Report from Study
  Country: US (occurrence: US)
  Receive Date: 20221117
  Receipt Date: 20230306
  Transmission Date: 20230417
  Serious: No
  Sender: FDA-Public Use
  Company Number: US-002147023-NVSC2022US258445

PATIENT
  Age: 14 Year
  Sex: Male

DRUGS (2)
  1. OMNITROPE [Suspect]
     Active Substance: SOMATROPIN
     Indication: Short stature
     Dosage: 2.6 MG, OTHER (DAILY 6 DAYS WEEK)
     Route: 058
     Dates: start: 20221013
  2. OMNITROPE [Suspect]
     Active Substance: SOMATROPIN
     Dosage: 2.6 MG, OTHER (DAILY 6 DAYS WEEK)
     Route: 058
     Dates: start: 20221113

REACTIONS (6)
  - Injection site haemorrhage [Unknown]
  - Injection site discharge [Unknown]
  - Device leakage [Unknown]
  - Product temperature excursion issue [Unknown]
  - Device difficult to use [Unknown]
  - Wrong technique in product usage process [Unknown]

NARRATIVE: CASE EVENT DATE: 20221114
